FAERS Safety Report 9174888 (Version 1)
Quarter: 2013Q1

REPORT INFORMATION
  Report Type: Spontaneous
  Country: FR (occurrence: FR)
  Receive Date: 20130320
  Receipt Date: 20130320
  Transmission Date: 20140127
  Serious: Yes (Death, Other)
  Sender: FDA-Public Use
  Company Number: FR-JNJFOC-20130308385

PATIENT
  Age: 16 Year
  Sex: Male

DRUGS (13)
  1. XARELTO [Suspect]
     Indication: THROMBOSIS IN DEVICE
     Route: 048
     Dates: start: 20120927, end: 20121016
  2. CIFLOX [Suspect]
     Indication: ANTIBIOTIC THERAPY
     Route: 042
     Dates: start: 20121008, end: 20121017
  3. CANCIDAS [Suspect]
     Indication: PROPHYLAXIS
     Route: 042
     Dates: start: 20120929, end: 20121016
  4. HYDROCORTISONE [Concomitant]
     Route: 048
     Dates: start: 20121005, end: 20121017
  5. KETOPROFEN [Concomitant]
     Route: 065
  6. SUPROFEN [Concomitant]
     Route: 065
  7. TERCIAN [Concomitant]
     Route: 065
  8. SPASFON [Concomitant]
     Route: 065
  9. RIVOTRIL [Concomitant]
     Route: 065
  10. POLARAMIN [Concomitant]
     Route: 065
  11. HEPARIN [Concomitant]
     Indication: THROMBOSIS
     Route: 065
  12. EUPANTOL [Concomitant]
     Route: 042
     Dates: start: 20121010, end: 20121228
  13. VANCOMYCINE PCH [Concomitant]
     Route: 042

REACTIONS (7)
  - Cutaneous vasculitis [Recovering/Resolving]
  - Off label use [Unknown]
  - Aplasia pure red cell [None]
  - Gastrointestinal infection [None]
  - Aspergillus infection [None]
  - Adenovirus infection [None]
  - Human herpesvirus 6 infection [None]
